FAERS Safety Report 13563515 (Version 1)
Quarter: 2017Q2

REPORT INFORMATION
  Report Type: Spontaneous
  Country: ES (occurrence: ES)
  Receive Date: 20170519
  Receipt Date: 20170519
  Transmission Date: 20170830
  Serious: Yes (Death, Hospitalization)
  Sender: FDA-Public Use
  Company Number: ES-PFIZER INC-2017215308

PATIENT
  Age: 68 Year
  Sex: Male

DRUGS (1)
  1. TRANGOREX [Suspect]
     Active Substance: AMIODARONE HYDROCHLORIDE
     Indication: ATRIAL FIBRILLATION
     Dosage: 1000 MG, WEEKLY
     Route: 048
     Dates: start: 2013, end: 201702

REACTIONS (3)
  - Hyperthyroidism [Fatal]
  - Multiple organ dysfunction syndrome [Fatal]
  - Thyroiditis [Fatal]

NARRATIVE: CASE EVENT DATE: 201612
